FAERS Safety Report 9535405 (Version 2)
Quarter: 2013Q4

REPORT INFORMATION
  Report Type: Spontaneous
  Country: US (occurrence: US)
  Receive Date: 20130918
  Receipt Date: 20131129
  Transmission Date: 20140711
  Serious: No
  Sender: FDA-Public Use
  Company Number: US-009507513-1309USA002709

PATIENT
  Age: 90 Year
  Sex: Female

DRUGS (2)
  1. AZASITE [Suspect]
     Indication: GLAUCOMA SURGERY
     Dosage: 2 DROPS IN EACH EYE AT BEDTIME
     Route: 047
     Dates: start: 201304
  2. AZASITE [Suspect]
     Dosage: 1 DROP ON QHS, PRN
     Route: 047
     Dates: start: 20130208

REACTIONS (5)
  - Meibomian gland dysfunction [Not Recovered/Not Resolved]
  - Drug dose omission [Unknown]
  - Product quality issue [Unknown]
  - No adverse event [Unknown]
  - Off label use [Unknown]
